FAERS Safety Report 12891709 (Version 1)
Quarter: 2016Q4

REPORT INFORMATION
  Report Type: Spontaneous
  Country: US (occurrence: US)
  Receive Date: 20161028
  Receipt Date: 20161028
  Transmission Date: 20170207
  Serious: Yes (Other)
  Sender: FDA-Public Use
  Company Number: US-TAIHO ONCOLOGY INC-EU-2016-02787

PATIENT
  Age: 79 Year
  Sex: Female

DRUGS (12)
  1. AMLODIPINE [Concomitant]
     Active Substance: AMLODIPINE BESYLATE
     Dosage: NI
  2. MAGNESIUM [Concomitant]
     Active Substance: MAGNESIUM
     Dosage: NI
  3. CELECOXIB. [Concomitant]
     Active Substance: CELECOXIB
     Dosage: NI
  4. LONSURF [Suspect]
     Active Substance: TIPIRACIL HYDROCHLORIDE\TRIFLURIDINE
     Indication: COLON CANCER
     Route: 048
     Dates: start: 20160919
  5. GLUCOSAMINE [Concomitant]
     Active Substance: GLUCOSAMINE
     Dosage: NI
  6. FERROUS FUMARATE [Concomitant]
     Active Substance: FERROUS FUMARATE
     Dosage: NI
  7. LOSARTAN. [Concomitant]
     Active Substance: LOSARTAN
     Dosage: NI
  8. CALCIUM [Concomitant]
     Active Substance: CALCIUM
     Dosage: NI
  9. FERROUS GLUCONATE [Concomitant]
     Active Substance: FERROUS GLUCONATE
     Dosage: NI
  10. ATORVASTATIN [Concomitant]
     Active Substance: ATORVASTATIN
     Dosage: NI
  11. PANTOPRAZOLE [Concomitant]
     Active Substance: PANTOPRAZOLE SODIUM
     Dosage: NI
  12. NITROFURANTOIN. [Concomitant]
     Active Substance: NITROFURANTOIN
     Dosage: NI

REACTIONS (1)
  - Bone marrow failure [Unknown]

NARRATIVE: CASE EVENT DATE: 201609
